FAERS Safety Report 12199075 (Version 1)
Quarter: 2016Q1

REPORT INFORMATION
  Report Type: Spontaneous
  Country: GB (occurrence: GB)
  Receive Date: 20160322
  Receipt Date: 20160322
  Transmission Date: 20160526
  Serious: Yes (Other)
  Sender: FDA-Public Use
  Company Number: GB-DEXPHARM-20160388

PATIENT
  Age: 92 Year
  Sex: Male

DRUGS (1)
  1. CHLORHEXIDINE GLUCONATE 0.05% [Suspect]
     Active Substance: CHLORHEXIDINE GLUCONATE
     Route: 050
     Dates: start: 20151209

REACTIONS (2)
  - Eye pain [Unknown]
  - Keratitis [Unknown]

NARRATIVE: CASE EVENT DATE: 20151209
